FAERS Safety Report 12161350 (Version 1)
Quarter: 2016Q1

REPORT INFORMATION
  Report Type: Spontaneous
  Country: CZ (occurrence: CZ)
  Receive Date: 20160308
  Receipt Date: 20160308
  Transmission Date: 20160526
  Serious: Yes (Hospitalization)
  Sender: FDA-Public Use
  Company Number: CZ-AMGEN-CZESP2016026746

PATIENT
  Age: 37 Year
  Sex: Female
  Weight: 58 kg

DRUGS (4)
  1. ENBREL [Suspect]
     Active Substance: ETANERCEPT
     Indication: RHEUMATOID ARTHRITIS
     Dosage: 50 MG, WEEKLY
     Route: 058
     Dates: start: 20140702
  2. BIOFENAC                           /00372302/ [Concomitant]
     Dosage: UNK
  3. AULIN [Concomitant]
     Active Substance: NIMESULIDE
     Dosage: UNK
  4. HELICID                            /00661201/ [Concomitant]
     Dosage: UNK

REACTIONS (1)
  - Facial paresis [Recovered/Resolved]

NARRATIVE: CASE EVENT DATE: 20150516
